FAERS Safety Report 9946403 (Version 1)
Quarter: 2014Q1

REPORT INFORMATION
  Report Type: Spontaneous
  Country: US (occurrence: US)
  Receive Date: 20140303
  Receipt Date: 20140303
  Transmission Date: 20141002
  Serious: Yes (Other)
  Sender: FDA-Public Use
  Company Number: US-AMGEN-USASP2013089435

PATIENT
  Age: 50 Year
  Sex: Female
  Weight: 79.36 kg

DRUGS (6)
  1. ENBREL [Suspect]
     Indication: PRODUCT USED FOR UNKNOWN INDICATION
     Dosage: 50 MG, QWK
     Route: 058
  2. INDOMETHACIN                       /00003801/ [Concomitant]
     Dosage: 75 MG, UNK
  3. HYZAAR [Concomitant]
     Dosage: 100-12.5
  4. OMEPRAZOLE [Concomitant]
     Dosage: 40 MG, UNK
  5. FIBER [Concomitant]
     Dosage: .52 G, UNK
  6. MULTIVITAMIN                       /00097801/ [Concomitant]
     Dosage: UNK

REACTIONS (4)
  - Upper respiratory tract infection [Recovered/Resolved]
  - Cough [Recovered/Resolved]
  - Lower respiratory tract infection [Recovered/Resolved]
  - Nasopharyngitis [Recovered/Resolved]
